FAERS Safety Report 18727786 (Version 4)
Quarter: 2021Q4

REPORT INFORMATION
  Report Type: Spontaneous
  Country: US (occurrence: US)
  Receive Date: 20210111
  Receipt Date: 20211117
  Transmission Date: 20220303
  Serious: No
  Sender: FDA-Public Use
  Company Number: US-PFIZER INC-2021013545

PATIENT
  Age: 65 Year
  Sex: Female

DRUGS (5)
  1. IBRANCE [Suspect]
     Active Substance: PALBOCICLIB
     Dosage: 125 MG
     Dates: start: 20201101
  2. IBRANCE [Suspect]
     Active Substance: PALBOCICLIB
     Dosage: 125 MG
     Route: 048
     Dates: start: 20201107
  3. IBRANCE [Suspect]
     Active Substance: PALBOCICLIB
     Dosage: 125 MG
     Dates: start: 20201109
  4. COVID-19 VACCINE [Concomitant]
     Dosage: UNK
  5. COVID-19 VACCINE [Concomitant]
     Dosage: UNK

REACTIONS (6)
  - Alopecia [Unknown]
  - Anaemia [Unknown]
  - Diarrhoea [Unknown]
  - Tongue ulceration [Recovered/Resolved]
  - Increased appetite [Unknown]
  - Weight increased [Unknown]

NARRATIVE: CASE EVENT DATE: 20210301
